FAERS Safety Report 6727683-5 (Version None)
Quarter: 2010Q2

REPORT INFORMATION
  Report Type: 
  Country: None (occurrence: None)
  Receive Date: 20100517
  Receipt Date: 20100511
  Transmission Date: 20101027
  Serious: Yes (Life-Threatening, Hospitalization)
  Sender: FDA-Public Use
  Company Number: FR-ROCHE-684426

PATIENT
  Sex: Female
  Weight: 66 kg

DRUGS (5)
  1. BEVACIZUMAB [Suspect]
     Indication: INFLAMMATORY CARCINOMA OF THE BREAST
     Dosage: FORM: VIAL DATE OF LAST DOSE PRIOR TO SAE: 10 FEB 2010
     Route: 042
     Dates: start: 20091028
  2. TRASTUZUMAB [Suspect]
     Indication: INFLAMMATORY CARCINOMA OF THE BREAST
     Dosage: LOADING DOSE
     Route: 042
  3. TRASTUZUMAB [Suspect]
     Dosage: DOSE: 6 MG/KG DATE OF LAST DOSE PRIOR TO SAE: 10 FEB 2010
     Route: 042
     Dates: start: 20100120
  4. DOCETAXEL [Suspect]
     Indication: INFLAMMATORY CARCINOMA OF THE BREAST
     Dosage: FORM:VIAL DOSE: 100 MG/M2 DATE OF LAST DOSE PRIOR TO SAE: 10 FEB 2010
     Route: 042
     Dates: start: 20100120
  5. TRIFLUCAN [Concomitant]

REACTIONS (2)
  - FEBRILE BONE MARROW APLASIA [None]
  - FEBRILE NEUTROPENIA [None]
